FAERS Safety Report 6190503-4 (Version None)
Quarter: 2009Q2

REPORT INFORMATION
  Report Type: 
  Country: None (occurrence: None)
  Receive Date: 20090513
  Receipt Date: 20090513
  Transmission Date: 20091009
  Serious: Yes (Hospitalization)
  Sender: FDA-Public Use
  Company Number: None

PATIENT
  Age: 84 Year
  Sex: Female
  Weight: 50.8029 kg

DRUGS (2)
  1. HYDROCHLOROTHIAZDE TAB [Suspect]
     Indication: HYPERTENSION
     Dosage: 12.5MG DAILY PO
     Route: 048
     Dates: start: 20090315, end: 20090323
  2. DIOVAN [Suspect]
     Dosage: 160MG DAILY PO
     Route: 048

REACTIONS (4)
  - CHOLELITHIASIS [None]
  - DIARRHOEA [None]
  - FALL [None]
  - PANCREATITIS [None]
